FAERS Safety Report 15157047 (Version 2)
Quarter: 2018Q3

REPORT INFORMATION
  Report Type: Report from Study
  Country: US (occurrence: US)
  Receive Date: 20180718
  Receipt Date: 20180824
  Transmission Date: 20181010
  Serious: No
  Sender: FDA-Public Use
  Company Number: US-BRISTOL-MYERS SQUIBB COMPANY-BMS-2018-064684

PATIENT
  Sex: Female

DRUGS (1)
  1. ABATACEPT [Suspect]
     Active Substance: ABATACEPT
     Indication: RHEUMATOID ARTHRITIS
     Dosage: 125 MG, WEEKLY
     Route: 065

REACTIONS (5)
  - Pain [Unknown]
  - Rheumatoid arthritis [Unknown]
  - Inflammation [Unknown]
  - Device malfunction [Unknown]
  - Discomfort [Unknown]

NARRATIVE: CASE EVENT DATE: 20180708
